FAERS Safety Report 14057124 (Version 1)
Quarter: 2017Q4

REPORT INFORMATION
  Report Type: Spontaneous
  Country: CO (occurrence: CO)
  Receive Date: 20171006
  Receipt Date: 20171006
  Transmission Date: 20180321
  Serious: Yes (Hospitalization)
  Sender: FDA-Public Use
  Company Number: CO-BAXTER-2017BAX034315

PATIENT
  Age: 4 Year
  Sex: Male
  Weight: 14 kg

DRUGS (2)
  1. HUMAN IMMUNOGLOBULIN [Suspect]
     Active Substance: HUMAN IMMUNOGLOBULIN G
     Indication: PRODUCT USED FOR UNKNOWN INDICATION
     Dosage: G VIAL X 5G/50 ML, 5G/50CC WITH PROGRAMMED PUMP AT 8.3CC/H, INFUSED IN 20 MINUTES, COMPOUNDED WITH S
     Route: 042
     Dates: start: 20170906
  2. CLORURO DE SODIO 0.9% [Suspect]
     Active Substance: SODIUM CHLORIDE
     Indication: MEDICATION DILUTION
     Route: 042
     Dates: start: 20170906

REACTIONS (6)
  - Pallor [Recovered/Resolved]
  - Incorrect drug administration rate [Unknown]
  - Hyperhidrosis [Recovered/Resolved]
  - Tachycardia [Recovered/Resolved]
  - Device infusion issue [Unknown]
  - Tremor [Unknown]

NARRATIVE: CASE EVENT DATE: 20170906
